FAERS Safety Report 4775308-0 (Version None)
Quarter: 2005Q3

REPORT INFORMATION
  Report Type: 
  Country: None (occurrence: None)
  Receive Date: 20050914
  Receipt Date: 20050805
  Transmission Date: 20060218
  Serious: Yes (Hospitalization)
  Sender: FDA-Public Use
  Company Number: S05-USA-03909-01

PATIENT
  Age: 51 Year
  Sex: Male

DRUGS (6)
  1. LEXAPRO [Suspect]
     Indication: ANXIETY
     Dosage: 10 MG QD PO
     Route: 048
     Dates: start: 20030101, end: 20050601
  2. LEXAPRO [Suspect]
     Indication: DEPRESSION
     Dosage: 10 MG QD PO
     Route: 048
     Dates: start: 20030101, end: 20050601
  3. LEXAPRO [Suspect]
     Indication: ANXIETY
     Dosage: 5 MG QD PO
     Route: 048
     Dates: start: 20050601, end: 20050701
  4. LEXAPRO [Suspect]
     Indication: DEPRESSION
     Dosage: 5 MG QD PO
     Route: 048
     Dates: start: 20050601, end: 20050701
  5. LEXAPRO [Suspect]
     Indication: ANXIETY
     Dosage: 10 MG QD PO
     Route: 048
     Dates: start: 20050805
  6. LEXAPRO [Suspect]
     Indication: DEPRESSION
     Dosage: 10 MG QD PO
     Route: 048
     Dates: start: 20050805

REACTIONS (1)
  - DRUG WITHDRAWAL SYNDROME [None]
